FAERS Safety Report 12020198 (Version 9)
Quarter: 2021Q1

REPORT INFORMATION
  Report Type: Spontaneous
  Country: JP (occurrence: JP)
  Receive Date: 20160206
  Receipt Date: 20210325
  Transmission Date: 20210419
  Serious: Yes (Congenital Anomaly, Other)
  Sender: FDA-Public Use
  Company Number: JP-UCBSA-2016002695

PATIENT
  Age: 0 Year
  Sex: Male
  Weight: 2.2 kg

DRUGS (2)
  1. E KEPPRA [Suspect]
     Active Substance: LEVETIRACETAM
     Indication: EPILEPSY
     Dosage: DAILY DOSE: 2000 MG
     Route: 064
     Dates: start: 2015, end: 20160119
  2. TEGRETOL [Suspect]
     Active Substance: CARBAMAZEPINE
     Indication: PRODUCT USED FOR UNKNOWN INDICATION
     Dosage: DAILY DOSE: 600 MG
     Route: 064
     Dates: start: 2015, end: 20160119

REACTIONS (4)
  - Maternal exposure before pregnancy [Unknown]
  - Congenital nail disorder [Not Recovered/Not Resolved]
  - Withdrawal syndrome [Unknown]
  - Low birth weight baby [Unknown]

NARRATIVE: CASE EVENT DATE: 2015
